FAERS Safety Report 18135827 (Version 4)
Quarter: 2023Q1

REPORT INFORMATION
  Report Type: Spontaneous
  Country: GB (occurrence: GB)
  Receive Date: 20200811
  Receipt Date: 20230203
  Transmission Date: 20230418
  Serious: Yes (Hospitalization, Other)
  Sender: FDA-Public Use
  Company Number: GB-ASTRAZENECA-2016SF33443

PATIENT
  Age: 55 Year
  Sex: Male
  Weight: 98 kg

DRUGS (11)
  1. SIMVASTATIN [Suspect]
     Active Substance: SIMVASTATIN
     Indication: Stent placement
     Dosage: 75 MILLIGRAM, QD
     Route: 065
     Dates: start: 201511
  2. CYCLOSPORINE [Suspect]
     Active Substance: CYCLOSPORINE
     Indication: Product used for unknown indication
     Dosage: UNK
     Route: 065
  3. ASPIRIN [Suspect]
     Active Substance: ASPIRIN
     Indication: Prophylaxis
     Dosage: 75 MILLIGRAM, QD
     Route: 065
     Dates: start: 201511
  4. TICAGRELOR [Suspect]
     Active Substance: TICAGRELOR
     Indication: Stent placement
     Dosage: 90 MILLIGRAM, QD
     Route: 048
     Dates: start: 201511, end: 20161120
  5. TICAGRELOR [Suspect]
     Active Substance: TICAGRELOR
     Indication: Prophylaxis
     Dosage: 90 MILLIGRAM, QD
     Route: 048
     Dates: start: 201511, end: 20161120
  6. BISOPROLOL [Concomitant]
     Active Substance: BISOPROLOL
     Indication: Hypertension
     Dosage: 3.75 MILLIGRAM, QD
     Route: 065
     Dates: start: 201511
  7. OMEPRAZOLE [Concomitant]
     Active Substance: OMEPRAZOLE
     Indication: Gastric disorder
     Dosage: 40 MILLIGRAM, QD
     Route: 065
     Dates: start: 201511
  8. OMEPRAZOLE [Concomitant]
     Active Substance: OMEPRAZOLE
     Indication: Prophylaxis
  9. NITROGLYCERIN [Concomitant]
     Active Substance: NITROGLYCERIN
     Indication: Chest pain
     Dosage: 400 MILLIGRAM, PRN AS REQUIRED
     Route: 065
     Dates: start: 201511
  10. ATORVASTATIN [Concomitant]
     Active Substance: ATORVASTATIN
     Indication: Hypercholesterolaemia
     Dosage: 80 MILLIGRAM, QD
     Route: 065
     Dates: start: 201511
  11. RAMIPRIL [Concomitant]
     Active Substance: RAMIPRIL
     Indication: Hypertension
     Dosage: 2.5 MILLIGRAM, QD
     Route: 065
     Dates: start: 201511

REACTIONS (2)
  - Epistaxis [Recovered/Resolved]
  - Condition aggravated [Recovered/Resolved]

NARRATIVE: CASE EVENT DATE: 20161108
